FAERS Safety Report 21075761 (Version 1)
Quarter: 2022Q3

REPORT INFORMATION
  Report Type: Spontaneous
  Country: US (occurrence: US)
  Receive Date: 20220713
  Receipt Date: 20220713
  Transmission Date: 20221027
  Serious: No
  Sender: FDA-Public Use
  Company Number: US-UNIQUE PHARMACEUTICAL LABORATORIES, A DIV. OF JBCPL-2022UNI000008

PATIENT
  Sex: Female

DRUGS (1)
  1. LITHIUM CARBONATE [Suspect]
     Active Substance: LITHIUM CARBONATE
     Indication: Bipolar disorder
     Dosage: UNK, BID
     Route: 065

REACTIONS (3)
  - Feeling hot [Unknown]
  - Drug ineffective [Unknown]
  - Product coating issue [Unknown]
